FAERS Safety Report 9795484 (Version 1)
Quarter: 2014Q1

REPORT INFORMATION
  Report Type: Spontaneous
  Country: MY (occurrence: MY)
  Receive Date: 20140103
  Receipt Date: 20140103
  Transmission Date: 20141002
  Serious: Yes (Other)
  Sender: FDA-Public Use
  Company Number: MY-JNJFOC-20131216016

PATIENT
  Age: 53 Year
  Sex: Female

DRUGS (3)
  1. CAELYX [Suspect]
     Indication: OVARIAN CANCER RECURRENT
     Route: 042
  2. DEXAMETHASONE [Concomitant]
     Route: 065
  3. GRANISETRON [Concomitant]
     Route: 065

REACTIONS (5)
  - Oxygen saturation decreased [Recovered/Resolved]
  - Chest pain [Recovered/Resolved]
  - Dyspnoea [Recovered/Resolved]
  - Flushing [Recovered/Resolved]
  - Pain [Recovered/Resolved]
